FAERS Safety Report 8193030-8 (Version None)
Quarter: 2012Q1

REPORT INFORMATION
  Report Type: 
  Country: None (occurrence: None)
  Receive Date: 20120308
  Receipt Date: 20120227
  Transmission Date: 20120608
  Serious: Yes (Life-Threatening, Hospitalization, Disabling)
  Sender: FDA-Public Use
  Company Number: FR-CELGENEUS-056-21880-12013000

PATIENT
  Sex: Female
  Weight: 60 kg

DRUGS (9)
  1. VALSARTAN [Concomitant]
     Route: 065
  2. DEXAMETHASONE [Concomitant]
     Indication: MULTIPLE MYELOMA
     Route: 065
     Dates: start: 20100101
  3. JANUVIA [Concomitant]
     Route: 065
  4. ZOMETA [Concomitant]
     Route: 065
  5. REVLIMID [Suspect]
     Indication: MULTIPLE MYELOMA
     Dosage: 10 MILLIGRAM
     Route: 048
     Dates: start: 20100402, end: 20111101
  6. OMEPRAZOLE [Concomitant]
     Route: 065
  7. PRAVASTATIN [Concomitant]
     Route: 065
  8. METFORMIN HYDROCHLORIDE [Concomitant]
     Route: 065
  9. VALACYCLOVIR HYDROCHLORIDE [Concomitant]
     Route: 065

REACTIONS (1)
  - BILE DUCT CANCER STAGE III [None]
